FAERS Safety Report 5756301-8 (Version None)
Quarter: 2008Q2

REPORT INFORMATION
  Report Type: 
  Country: None (occurrence: None)
  Receive Date: 20080528
  Receipt Date: 20080528
  Transmission Date: 20081010
  Serious: Yes (Other)
  Sender: FDA-Public Use
  Company Number: None

PATIENT
  Sex: Female
  Weight: 90.7194 kg

DRUGS (2)
  1. CRESTOR [Suspect]
     Indication: BLOOD CHOLESTEROL INCREASED
     Dosage: 5MG  1  PO
     Route: 048
     Dates: start: 20080513, end: 20080526
  2. CRESTOR [Suspect]
     Indication: BLOOD TRIGLYCERIDES INCREASED
     Dosage: 5MG  1  PO
     Route: 048
     Dates: start: 20080513, end: 20080526

REACTIONS (4)
  - COUGH [None]
  - DRUG HYPERSENSITIVITY [None]
  - MUSCLE TWITCHING [None]
  - WHEEZING [None]
